FAERS Safety Report 25518531 (Version 1)
Quarter: 2025Q3

REPORT INFORMATION
  Report Type: Spontaneous
  Country: US (occurrence: US)
  Receive Date: 20250704
  Receipt Date: 20250704
  Transmission Date: 20251020
  Serious: Yes (Other)
  Sender: IMMUNOCORE
  Company Number: US-IMMUNOCORE, LTD-2025-IMC-004344

PATIENT
  Age: 50 Year
  Sex: Male

DRUGS (2)
  1. KIMMTRAK [Suspect]
     Active Substance: TEBENTAFUSP-TEBN
     Indication: Metastases to liver
     Dates: start: 202402
  2. HEPZATO [Suspect]
     Active Substance: MELPHALAN
     Indication: Metastases to liver

REACTIONS (7)
  - Exertional rhabdomyolysis [Unknown]
  - Platelet count abnormal [Unknown]
  - Hepatic lesion [Unknown]
  - Malaise [Unknown]
  - Full blood count abnormal [Unknown]
  - Hepatic enzyme increased [Unknown]
  - Product dose omission issue [Unknown]

NARRATIVE: CASE EVENT DATE: 20250101
